FAERS Safety Report 11110978 (Version 2)
Quarter: 2015Q2

REPORT INFORMATION
  Report Type: Spontaneous
  Country: US (occurrence: US)
  Receive Date: 20150513
  Receipt Date: 20150528
  Transmission Date: 20150821
  Serious: Yes (Hospitalization)
  Sender: FDA-Public Use
  Company Number: US-ENDO PHARMACEUTICALS INC.-2015-000712

PATIENT
  Age: 88 Year
  Sex: Female
  Weight: 69.92 kg

DRUGS (2)
  1. OXYCODONE/ACETAMINOPHEN 5MG/325MG TABLETS [Suspect]
     Active Substance: ACETAMINOPHEN\OXYCODONE\OXYCODONE HYDROCHLORIDE
     Indication: PAIN
     Route: 048
     Dates: end: 201504
  2. ACETAMINOPHEN AND CODEINE [Suspect]
     Active Substance: ACETAMINOPHEN\CODEINE PHOSPHATE
     Indication: PAIN
     Dosage: 120MG/1300MG
     Route: 048
     Dates: end: 201504

REACTIONS (3)
  - Dehydration [Unknown]
  - Hospitalisation [Recovered/Resolved]
  - Constipation [Unknown]
